FAERS Safety Report 8906442 (Version 1)
Quarter: 2012Q4

REPORT INFORMATION
  Report Type: Spontaneous
  Country: DK (occurrence: None)
  Receive Date: 20121107
  Receipt Date: 20121107
  Transmission Date: 20130627
  Serious: Yes (Other)
  Sender: FDA-Public Use
  Company Number: 2012MA012932

PATIENT
  Sex: Female

DRUGS (2)
  1. MIRTAZAPINE [Suspect]
     Indication: DEPRESSED MOOD
     Route: 048
     Dates: start: 20120625, end: 20120927
  2. MIRTAZAPINE [Concomitant]

REACTIONS (3)
  - Swollen tongue [None]
  - Oedema mouth [None]
  - Dysphagia [None]
